FAERS Safety Report 6310902-7 (Version None)
Quarter: 2009Q3

REPORT INFORMATION
  Report Type: 
  Country: None (occurrence: None)
  Receive Date: 20090812
  Receipt Date: 20090729
  Transmission Date: 20100115
  Serious: Yes (Hospitalization)
  Sender: FDA-Public Use
  Company Number: 1000007697

PATIENT
  Age: 85 Year
  Sex: Female

DRUGS (2)
  1. MEMANTINE HCL [Suspect]
     Indication: ANXIETY
  2. OLANZAPINE [Suspect]
     Indication: DEPRESSION
     Dosage: 5 MG

REACTIONS (5)
  - ESCHERICHIA INFECTION [None]
  - PYELONEPHRITIS [None]
  - RENAL FAILURE [None]
  - RHABDOMYOLYSIS [None]
  - SEPSIS [None]
